FAERS Safety Report 9184307 (Version 1)
Quarter: 2012Q4

REPORT INFORMATION
  Report Type: 
  Country: US (occurrence: US)
  Receive Date: 20121031
  Receipt Date: 20121031
  Transmission Date: 20130627
  Serious: Yes (Other)
  Sender: FDA-Public Use
  Company Number: PHEH2012US020820

PATIENT
  Age: 57 None
  Sex: Female

DRUGS (5)
  1. DIOVAN [Suspect]
     Dosage: 160 mg, QD
  2. RAUWOLFIA SERPENTINA [Suspect]
     Dosage: UNK UKN, UNK
  3. NIFEDIPINE ER [Concomitant]
     Dosage: 60 mg, UNK
  4. JANUVIA [Concomitant]
     Dosage: 50 mg, QD
  5. METFORMIN [Concomitant]
     Dosage: 1000 mg, BID

REACTIONS (2)
  - Type 2 diabetes mellitus [Unknown]
  - Myocardial infarction [Unknown]
